FAERS Safety Report 10004047 (Version 2)
Quarter: 2014Q2

REPORT INFORMATION
  Report Type: Spontaneous
  Country: US (occurrence: US)
  Receive Date: 20140312
  Receipt Date: 20140407
  Transmission Date: 20141212
  Serious: No
  Sender: FDA-Public Use
  Company Number: US-009507513-1403USA005395

PATIENT
  Sex: Male

DRUGS (1)
  1. ZOLINZA [Suspect]
     Dosage: 3 CAPSULES Q DAY
     Route: 048
     Dates: start: 20140307

REACTIONS (3)
  - Drug dose omission [Unknown]
  - Product packaging quantity issue [Unknown]
  - No adverse event [Unknown]
